FAERS Safety Report 25641410 (Version 5)
Quarter: 2025Q3

REPORT INFORMATION
  Report Type: Report from Study
  Country: US (occurrence: US)
  Receive Date: 20250804
  Receipt Date: 20250918
  Transmission Date: 20251021
  Serious: Yes (Hospitalization, Other)
  Sender: MALLINCKRODT
  Company Number: US-MALLINCKRODT-MNK202504496

PATIENT
  Sex: Female

DRUGS (3)
  1. CORTICOTROPIN [Suspect]
     Active Substance: CORTICOTROPIN
     Indication: Rheumatoid arthritis
     Route: 058
  2. CORTICOTROPIN [Suspect]
     Active Substance: CORTICOTROPIN
  3. BENLYSTA [Concomitant]
     Active Substance: BELIMUMAB

REACTIONS (8)
  - Blood pressure increased [Unknown]
  - Ill-defined disorder [Unknown]
  - Lupus encephalitis [Unknown]
  - Renal cancer [Unknown]
  - Platelet transfusion [Unknown]
  - Cushing^s syndrome [Unknown]
  - Dyspnoea [Unknown]
  - Stress [Unknown]
